FAERS Safety Report 19003000 (Version 3)
Quarter: 2021Q3

REPORT INFORMATION
  Report Type: Report from Study
  Country: US (occurrence: US)
  Receive Date: 20210312
  Receipt Date: 20210825
  Transmission Date: 20211014
  Serious: Yes (Hospitalization, Other)
  Sender: FDA-Public Use
  Company Number: US-TAKEDA-US202002437

PATIENT
  Age: 10 Year
  Sex: Male
  Weight: 52 kg

DRUGS (16)
  1. NORMAL SALINE [Concomitant]
     Active Substance: SODIUM CHLORIDE
     Dosage: UNK
     Route: 065
  2. IDURSULFASE [Suspect]
     Active Substance: IDURSULFASE
     Indication: MUCOPOLYSACCHARIDOSIS II
     Dosage: 16 INTERNATIONAL UNIT, 1/WEEK
     Route: 042
  3. ALBUTEROL [SALBUTAMOL] [Concomitant]
     Active Substance: ALBUTEROL
     Dosage: UNK
     Route: 065
  4. IDURSULFASE [Suspect]
     Active Substance: IDURSULFASE
     Dosage: 24 MILLIGRAM, 1/WEEK
     Route: 042
     Dates: start: 20190121
  5. SINGULAIR [Concomitant]
     Active Substance: MONTELUKAST SODIUM
     Dosage: UNK
     Route: 065
  6. BUDESONIDE. [Concomitant]
     Active Substance: BUDESONIDE
     Dosage: UNK
     Route: 065
  7. IDURSULFASE [Suspect]
     Active Substance: IDURSULFASE
     Dosage: 24 MILLIGRAM, 1/WEEK
     Route: 042
     Dates: start: 20190124
  8. KEPPRA [Concomitant]
     Active Substance: LEVETIRACETAM
     Dosage: UNK
     Route: 065
  9. IDURSULFASE [Suspect]
     Active Substance: IDURSULFASE
     Dosage: 24 MILLIGRAM, 1/WEEK
     Route: 042
     Dates: start: 20200501
  10. EPINEPHRINE. [Concomitant]
     Active Substance: EPINEPHRINE
     Dosage: UNK
     Route: 065
  11. DIPHENHYDRAMINE. [Concomitant]
     Active Substance: DIPHENHYDRAMINE
     Dosage: UNK
     Route: 065
  12. PROPECIA [Concomitant]
     Active Substance: FINASTERIDE
     Dosage: UNK
     Route: 065
  13. ZYRTEC [Concomitant]
     Active Substance: CETIRIZINE HYDROCHLORIDE
     Dosage: UNK
     Route: 065
  14. HEPARIN [Concomitant]
     Active Substance: HEPARIN SODIUM
     Dosage: UNK
     Route: 065
  15. DIAZEPAM. [Concomitant]
     Active Substance: DIAZEPAM
     Dosage: UNK
     Route: 065
  16. LIDOCAINE/PRILOCAINE [Concomitant]
     Active Substance: LIDOCAINE\PRILOCAINE
     Dosage: UNK
     Route: 065

REACTIONS (8)
  - Seizure [Unknown]
  - Pancreatitis [Unknown]
  - Urinary tract infection [Unknown]
  - Hypothermia [Unknown]
  - Blood sodium decreased [Unknown]
  - Product dose omission issue [Unknown]
  - Inappropriate schedule of product administration [Unknown]
  - Pneumonia [Unknown]

NARRATIVE: CASE EVENT DATE: 20200123
